FAERS Safety Report 14035204 (Version 11)
Quarter: 2018Q2

REPORT INFORMATION
  Report Type: Report from Study
  Country: US (occurrence: US)
  Receive Date: 20171003
  Receipt Date: 20180507
  Transmission Date: 20180711
  Serious: Yes (Life-Threatening, Other)
  Sender: FDA-Public Use
  Company Number: US-TESARO, INC-US-2017TSO02889

PATIENT

DRUGS (5)
  1. ZEJULA [Suspect]
     Active Substance: NIRAPARIB
     Indication: OVARIAN CANCER
     Dosage: 300 MG, QD
     Route: 048
     Dates: start: 20170908, end: 20171003
  2. ZEJULA [Suspect]
     Active Substance: NIRAPARIB
     Dosage: 200 MG, QD
     Route: 048
  3. ZEJULA [Suspect]
     Active Substance: NIRAPARIB
     Dosage: 300 MG, QD
     Route: 048
  4. ZEJULA [Suspect]
     Active Substance: NIRAPARIB
     Dosage: 200 MG, QD
     Route: 048
     Dates: start: 20171030, end: 20171204
  5. ZEJULA [Suspect]
     Active Substance: NIRAPARIB
     Dosage: 200 MG, QD
     Route: 048
     Dates: end: 20180124

REACTIONS (19)
  - Transfusion reaction [Not Recovered/Not Resolved]
  - Nausea [Not Recovered/Not Resolved]
  - Asthenia [Not Recovered/Not Resolved]
  - Stent placement [Unknown]
  - Blood test abnormal [Recovering/Resolving]
  - Gait disturbance [Not Recovered/Not Resolved]
  - Herpes zoster [Not Recovered/Not Resolved]
  - Anaemia [Not Recovered/Not Resolved]
  - Decreased appetite [Recovering/Resolving]
  - Haemoglobin decreased [Not Recovered/Not Resolved]
  - Headache [Not Recovered/Not Resolved]
  - Intestinal obstruction [Not Recovered/Not Resolved]
  - Fatigue [Not Recovered/Not Resolved]
  - Neutrophil count decreased [Not Recovered/Not Resolved]
  - Nervousness [Not Recovered/Not Resolved]
  - White blood cell count decreased [Not Recovered/Not Resolved]
  - Platelet count decreased [Not Recovered/Not Resolved]
  - Neoplasm progression [Unknown]
  - Carbohydrate antigen 125 increased [Not Recovered/Not Resolved]
